FAERS Safety Report 11504053 (Version 1)
Quarter: 2015Q3

REPORT INFORMATION
  Report Type: Spontaneous
  Country: US (occurrence: US)
  Receive Date: 20150914
  Receipt Date: 20150914
  Transmission Date: 20151125
  Serious: Yes (Death, Hospitalization)
  Sender: FDA-Public Use
  Company Number: US-BAXALTA-2015BLT001588

PATIENT
  Sex: Female
  Weight: 80.3 kg

DRUGS (3)
  1. CEPROTIN [Suspect]
     Active Substance: PROTEIN C
     Indication: PRODUCT USED FOR UNKNOWN INDICATION
     Dosage: 8144 IU, UNK, FIRST DOSE
     Route: 065
  2. CEPROTIN [Suspect]
     Active Substance: PROTEIN C
     Dosage: 5090 IU, UNK, SECOND DOSE
     Route: 065
     Dates: start: 201508
  3. CEPROTIN [Suspect]
     Active Substance: PROTEIN C
     Dosage: 5090 IU, UNK, THIRD DOSE
     Route: 065
     Dates: start: 20150830

REACTIONS (3)
  - Death [Fatal]
  - Asthenia [Unknown]
  - Urinary tract infection [Unknown]

NARRATIVE: CASE EVENT DATE: 2015
